FAERS Safety Report 6278305-1 (Version None)
Quarter: 2009Q3

REPORT INFORMATION
  Report Type: 
  Country: None (occurrence: None)
  Receive Date: 20090722
  Receipt Date: 20090715
  Transmission Date: 20100115
  Serious: Yes (Other)
  Sender: FDA-Public Use
  Company Number: US-ASTRAZENECA-2006UW24339

PATIENT
  Age: 18984 Day
  Sex: Female
  Weight: 96.6 kg

DRUGS (12)
  1. SEROQUEL [Suspect]
     Indication: DEPRESSION
     Dosage: 25-400 MG
     Route: 048
     Dates: start: 20011010
  2. SEROQUEL [Suspect]
     Route: 048
     Dates: start: 20030501, end: 20050501
  3. NAVANE [Concomitant]
  4. ZYPREXA [Concomitant]
  5. CELEXA [Concomitant]
     Dosage: 20-40 MG
     Route: 048
     Dates: start: 20011114
  6. DETROL [Concomitant]
     Dosage: 2-4 MG
     Dates: start: 20020520
  7. WELLBUTRIN [Concomitant]
     Dosage: 100-200 MG
     Dates: start: 20020921
  8. CLONAZEPAM [Concomitant]
     Dates: start: 20030127
  9. ETODOLAC [Concomitant]
     Dosage: 300-600 MG
     Dates: start: 20030721
  10. PROZAC [Concomitant]
     Dosage: 20-40 MG
     Dates: start: 20030818
  11. LIPITOR [Concomitant]
     Dosage: 10-20 MG
     Dates: start: 20031012
  12. BENZTROPINE [Concomitant]
     Dates: start: 20040420

REACTIONS (6)
  - DIABETES MELLITUS [None]
  - DIABETIC NEUROPATHY [None]
  - KETOACIDOSIS [None]
  - MULTIPLE INJURIES [None]
  - PANCREATITIS [None]
  - TYPE 2 DIABETES MELLITUS [None]
